FAERS Safety Report 25424106 (Version 1)
Quarter: 2025Q2

REPORT INFORMATION
  Report Type: Spontaneous
  Country: JP (occurrence: JP)
  Receive Date: 20250611
  Receipt Date: 20250611
  Transmission Date: 20250717
  Serious: Yes (Hospitalization)
  Sender: EISAI
  Company Number: JP-Eisai-EC-2025-190515

PATIENT
  Age: 76 Year
  Sex: Male

DRUGS (4)
  1. LENVATINIB [Suspect]
     Active Substance: LENVATINIB
     Indication: Thymic carcinoma
     Dates: start: 202204, end: 2022
  2. LENVATINIB [Suspect]
     Active Substance: LENVATINIB
     Dates: start: 2022, end: 2022
  3. LENVATINIB [Suspect]
     Active Substance: LENVATINIB
  4. LENVATINIB [Suspect]
     Active Substance: LENVATINIB
     Dates: start: 2022, end: 202310

REACTIONS (5)
  - Pneumothorax [Recovering/Resolving]
  - Hypertension [Unknown]
  - Weight decreased [Unknown]
  - Decreased appetite [Unknown]
  - Palmar-plantar erythrodysaesthesia syndrome [Unknown]

NARRATIVE: CASE EVENT DATE: 20220101
